FAERS Safety Report 7768932-4 (Version None)
Quarter: 2011Q3

REPORT INFORMATION
  Report Type: 
  Country: None (occurrence: None)
  Receive Date: 20110922
  Receipt Date: 20110705
  Transmission Date: 20111222
  Serious: No
  Sender: FDA-Public Use
  Company Number: US-ASTRAZENECA-2011SE21337

PATIENT
  Age: 40 Year
  Sex: Male
  Weight: 68 kg

DRUGS (3)
  1. SEROQUEL XR [Suspect]
     Indication: BIPOLAR DISORDER
     Route: 048
     Dates: start: 20110101
  2. CLONAZEPAM [Concomitant]
     Indication: ANXIETY
  3. DEPAKOTE [Concomitant]
     Indication: BIPOLAR DISORDER

REACTIONS (5)
  - FEELING ABNORMAL [None]
  - ABDOMINAL PAIN [None]
  - FEELING DRUNK [None]
  - MUSCULAR WEAKNESS [None]
  - WEIGHT INCREASED [None]
